FAERS Safety Report 18959431 (Version 2)
Quarter: 2021Q1

REPORT INFORMATION
  Report Type: Report from Study
  Country: CO (occurrence: CO)
  Receive Date: 20210302
  Receipt Date: 20210324
  Transmission Date: 20210420
  Serious: Yes (Hospitalization, Other)
  Sender: FDA-Public Use
  Company Number: CO-BRISTOL-MYERS SQUIBB COMPANY-BMS-2021-012000

PATIENT
  Age: 61 Year
  Sex: Male

DRUGS (1)
  1. NIVOLUMAB [Suspect]
     Active Substance: NIVOLUMAB
     Indication: MALIGNANT MELANOMA
     Dosage: 55 MILLIGRAM, Q3WK
     Route: 042
     Dates: start: 20201106

REACTIONS (12)
  - Off label use [Unknown]
  - Dizziness [Recovering/Resolving]
  - Vomiting [Recovering/Resolving]
  - Syncope [Recovering/Resolving]
  - Discomfort [Recovered/Resolved]
  - Headache [Unknown]
  - Dysstasia [Recovering/Resolving]
  - Myalgia [Unknown]
  - Gait disturbance [Recovering/Resolving]
  - Vision blurred [Recovering/Resolving]
  - Pyrexia [Unknown]
  - Diarrhoea [Unknown]

NARRATIVE: CASE EVENT DATE: 20210114
